FAERS Safety Report 14298463 (Version 2)
Quarter: 2017Q4

REPORT INFORMATION
  Report Type: Spontaneous
  Country: IT (occurrence: IT)
  Receive Date: 20171218
  Receipt Date: 20171220
  Transmission Date: 20180321
  Serious: Yes (Hospitalization)
  Sender: FDA-Public Use
  Company Number: IT-009507513-1712ITA007882

PATIENT
  Age: 88 Year
  Sex: Female

DRUGS (10)
  1. CACIT [Concomitant]
     Active Substance: CALCIUM\VITAMIN D
  2. NITROGLYCERIN. [Suspect]
     Active Substance: NITROGLYCERIN
     Indication: PRODUCT USED FOR UNKNOWN INDICATION
     Dosage: UNK
  3. SPIRIVA [Concomitant]
     Active Substance: TIOTROPIUM BROMIDE MONOHYDRATE
  4. ZYLORIC [Concomitant]
     Active Substance: ALLOPURINOL
  5. FUROSEMIDE. [Suspect]
     Active Substance: FUROSEMIDE
     Indication: PRODUCT USED FOR UNKNOWN INDICATION
     Dosage: 375 MG, QOD
     Route: 048
     Dates: start: 20110423, end: 20110523
  6. LUVION (CANRENOATE POTASSIUM) [Suspect]
     Active Substance: CANRENOATE POTASSIUM
     Dosage: 1 DF, QD
     Route: 048
     Dates: start: 20110423, end: 20110523
  7. DILATREND [Concomitant]
     Active Substance: CARVEDILOL
  8. CLEXANE (ENOXAPARIN SODIUM) [Concomitant]
     Active Substance: ENOXAPARIN SODIUM
  9. SERTRALINE HYDROCHLORIDE. [Suspect]
     Active Substance: SERTRALINE HYDROCHLORIDE
     Indication: PRODUCT USED FOR UNKNOWN INDICATION
     Dosage: UNK
     Dates: start: 20110423, end: 20110523
  10. DERMATRANS (NITROGLYCERIN) [Suspect]
     Active Substance: NITROGLYCERIN
     Dosage: 1 DF, QD
     Route: 062
     Dates: start: 20110423, end: 20110523

REACTIONS (6)
  - Decreased appetite [Unknown]
  - Hyperkalaemia [Unknown]
  - Oliguria [Unknown]
  - Epistaxis [Unknown]
  - Dehydration [Unknown]
  - Lethargy [Unknown]

NARRATIVE: CASE EVENT DATE: 20110523
